FAERS Safety Report 9962046 (Version 1)
Quarter: 2014Q1

REPORT INFORMATION
  Report Type: Report from Study
  Country: US (occurrence: US)
  Receive Date: 20140305
  Receipt Date: 20140305
  Transmission Date: 20141002
  Serious: No
  Sender: FDA-Public Use
  Company Number: US-ABBVIE-13P-163-1115698-00

PATIENT
  Age: 56 Year
  Sex: Female
  Weight: 78.09 kg

DRUGS (6)
  1. HUMIRA [Suspect]
     Indication: PSORIATIC ARTHROPATHY
     Dosage: 2 INJECTIONS ONE INJECTION AND FOUR DAYS LATER
     Route: 058
     Dates: start: 201212, end: 201212
  2. HUMIRA [Suspect]
     Route: 058
     Dates: start: 201107, end: 201108
  3. OXYCODONE [Concomitant]
     Indication: BACK PAIN
  4. NEXIUM [Concomitant]
     Indication: DYSPEPSIA
  5. STOOL SOFTNER [Concomitant]
     Indication: PRODUCT USED FOR UNKNOWN INDICATION
  6. AMITRIPTYLINE [Concomitant]
     Indication: PRODUCT USED FOR UNKNOWN INDICATION

REACTIONS (6)
  - Myalgia [Recovered/Resolved]
  - Bradycardia [Recovered/Resolved]
  - Rash [Recovered/Resolved]
  - Feeling hot [Recovered/Resolved]
  - Asthenia [Recovered/Resolved]
  - Fatigue [Recovered/Resolved]
